FAERS Safety Report 9059239 (Version 4)
Quarter: 2013Q2

REPORT INFORMATION
  Report Type: Spontaneous
  Country: CO (occurrence: CO)
  Receive Date: 20130211
  Receipt Date: 20130509
  Transmission Date: 20140414
  Serious: Yes (Other)
  Sender: FDA-Public Use
  Company Number: CO-ROCHE-1187721

PATIENT
  Age: 8 Year
  Sex: Female
  Weight: 28.15 kg

DRUGS (7)
  1. XOLAIR [Suspect]
     Indication: ASTHMA
     Route: 042
     Dates: start: 20121128
  2. XOLAIR [Suspect]
     Route: 065
     Dates: start: 20121130
  3. XOLAIR [Suspect]
     Route: 065
     Dates: start: 20121217
  4. XOLAIR [Suspect]
     Route: 058
     Dates: start: 201212
  5. OMEPRAZOLE [Concomitant]
     Route: 065
  6. MONTELUKAST [Concomitant]
  7. SALBUTAMOL [Concomitant]

REACTIONS (4)
  - Urticaria [Recovered/Resolved]
  - Face oedema [Recovered/Resolved]
  - Injection site urticaria [Recovered/Resolved]
  - Incorrect route of drug administration [Unknown]
